FAERS Safety Report 7099548-3 (Version None)
Quarter: 2010Q4

REPORT INFORMATION
  Report Type: 
  Country: None (occurrence: None)
  Receive Date: 20101112
  Receipt Date: 20081118
  Transmission Date: 20110411
  Serious: No
  Sender: FDA-Public Use
  Company Number: US-KINGPHARMUSA00001-K200801324

PATIENT
  Sex: Female

DRUGS (1)
  1. LEVOXYL [Suspect]
     Dosage: 62.5 MCG, QD
     Dates: start: 20071101

REACTIONS (2)
  - DRUG INEFFECTIVE [None]
  - HYPOTHYROIDISM [None]
